FAERS Safety Report 7141181-9 (Version None)
Quarter: 2010Q4

REPORT INFORMATION
  Report Type: 
  Country: None (occurrence: None)
  Receive Date: 20101122
  Receipt Date: 20101108
  Transmission Date: 20110411
  Serious: Yes (Death, Hospitalization)
  Sender: FDA-Public Use
  Company Number: 2010MA004069

PATIENT
  Age: 78 Year
  Sex: Male
  Weight: 105.3 kg

DRUGS (9)
  1. METFORMIN HYDROCHLORIDE [Suspect]
     Indication: DIABETES MELLITUS
     Dosage: 2 GM; QD; PO
     Route: 048
     Dates: start: 20070614, end: 20100803
  2. OMEPRAZOLE [Concomitant]
  3. MOVICOL [Concomitant]
  4. SERTRALINE HYDROCHLORIDE [Concomitant]
  5. SIMVASTATIN [Concomitant]
  6. . [Concomitant]
  7. LAXOBERAL [Concomitant]
  8. FURIX [Concomitant]
  9. MORPHINE [Concomitant]

REACTIONS (4)
  - BLOOD CREATININE INCREASED [None]
  - DYSPNOEA [None]
  - FATIGUE [None]
  - LACTIC ACIDOSIS [None]
